FAERS Safety Report 9008368 (Version 2)
Quarter: 2013Q1

REPORT INFORMATION
  Report Type: Report from Study
  Country: US (occurrence: US)
  Receive Date: 20130111
  Receipt Date: 20130116
  Transmission Date: 20140127
  Serious: Yes (Hospitalization, Other)
  Sender: FDA-Public Use
  Company Number: US-ABBOTT-13P-163-1033857-00

PATIENT
  Sex: Female
  Weight: 81.72 kg

DRUGS (9)
  1. METHYLDOPA [Concomitant]
     Indication: HYPERTENSION
  2. NIFEDIPINE [Concomitant]
     Indication: HYPERTENSION
  3. PRENATAL VITAMINS [Concomitant]
     Indication: PRODUCT USED FOR UNKNOWN INDICATION
  4. VITAMIN D NOS [Concomitant]
     Indication: PRODUCT USED FOR UNKNOWN INDICATION
  5. HUMIRA [Suspect]
     Indication: PSORIATIC ARTHROPATHY
     Dates: start: 200802, end: 200803
  6. HUMIRA [Suspect]
     Dates: start: 200906, end: 201006
  7. HUMIRA [Suspect]
     Dates: start: 201006, end: 2011
  8. HUMIRA [Suspect]
     Dates: start: 2011, end: 201112
  9. HYDROCHLOROTHIAZIDE [Concomitant]
     Indication: HYPERTENSION

REACTIONS (6)
  - Ectopic pregnancy [Unknown]
  - Abdominal pain [Recovered/Resolved]
  - Vaginal haemorrhage [Recovered/Resolved]
  - Gallbladder disorder [Recovered/Resolved]
  - Psoriatic arthropathy [Recovered/Resolved]
  - Arthritis [Recovered/Resolved]
